FAERS Safety Report 18637182 (Version 1)
Quarter: 2020Q4

REPORT INFORMATION
  Report Type: Report from Study
  Country: None (occurrence: CH)
  Receive Date: 20201219
  Receipt Date: 20201219
  Transmission Date: 20210114
  Serious: Yes (Hospitalization)
  Sender: FDA-Public Use
  Company Number: CH-ABBVIE-20K-151-3685277-00

PATIENT
  Sex: Male

DRUGS (3)
  1. DUODOPA [Suspect]
     Active Substance: CARBIDOPA\LEVODOPA
     Dosage: MD: 0 ML, CRD: 3.4 ML/H, CRN: 1.5 ML/H, ED: 1 ML, LOCK LEVEL 1H 1 CASSETTE PER DAY
     Route: 050
     Dates: start: 20201209, end: 202012
  2. DUODOPA [Suspect]
     Active Substance: CARBIDOPA\LEVODOPA
     Dosage: MD: 0.5 ML, CRD: 2.7 ML/H, CRN: 00 ML/H, ED: 1 ML, 1 CASSETTE PER DAY
     Route: 050
     Dates: start: 202012
  3. DUODOPA [Suspect]
     Active Substance: CARBIDOPA\LEVODOPA
     Indication: PARKINSON^S DISEASE
     Dosage: 1 CASSETTE PER DAY
     Route: 050
     Dates: start: 202009, end: 2020

REACTIONS (2)
  - On and off phenomenon [Unknown]
  - Treatment noncompliance [Recovering/Resolving]

NARRATIVE: CASE EVENT DATE: 2020
